FAERS Safety Report 8695073 (Version 2)
Quarter: 2013Q4

REPORT INFORMATION
  Report Type: Spontaneous
  Country: US (occurrence: US)
  Receive Date: 20120731
  Receipt Date: 20131101
  Transmission Date: 20140711
  Serious: No
  Sender: FDA-Public Use
  Company Number: US-009507513-1207USA008548

PATIENT
  Age: 59 Year
  Sex: Male

DRUGS (8)
  1. PEGINTRON [Suspect]
     Indication: CHRONIC HEPATITIS C
     Dosage: 120 MICROGRAM, QW
     Route: 058
     Dates: start: 201205
  2. RIBASPHERE [Suspect]
  3. INCIVEK [Suspect]
  4. METFORMIN [Concomitant]
  5. ASPIRIN [Concomitant]
  6. CYANOCOBALAMIN [Concomitant]
  7. OMEGA-3 MARINE TRIGLYCERIDES [Concomitant]
  8. VITAMIN E [Concomitant]

REACTIONS (7)
  - Incontinence [Unknown]
  - Micturition urgency [Unknown]
  - Pallor [Unknown]
  - Blood urine present [Unknown]
  - Weight decreased [Unknown]
  - Decreased appetite [Unknown]
  - Fatigue [Unknown]
